FAERS Safety Report 17902584 (Version 2)
Quarter: 2020Q2

REPORT INFORMATION
  Report Type: Report from Study
  Country: FR (occurrence: FR)
  Receive Date: 20200616
  Receipt Date: 20200618
  Transmission Date: 20200714
  Serious: Yes (Life-Threatening, Hospitalization)
  Sender: FDA-Public Use
  Company Number: FR-PFIZER INC-2020230950

PATIENT
  Weight: 51 kg

DRUGS (7)
  1. CYTARABINE. [Concomitant]
     Active Substance: CYTARABINE
     Indication: ACUTE MYELOID LEUKAEMIA
     Dosage: 157 MG, 2X/DAY
     Dates: start: 20200519, end: 20200529
  2. TARGOCID [Concomitant]
     Active Substance: TEICOPLANIN
     Indication: PYREXIA
     Dosage: 520 MG, 2X/DAY
     Dates: start: 20200530, end: 20200604
  3. GEMTUZUMAB OZOGAMICIN [Suspect]
     Active Substance: GEMTUZUMAB OZOGAMICIN
     Indication: ACUTE MYELOID LEUKAEMIA
     Dosage: 4.7 MG (OTHER)
     Route: 042
     Dates: start: 20200522, end: 20200522
  4. BACTRIM [Concomitant]
     Active Substance: SULFAMETHOXAZOLE\TRIMETHOPRIM
     Indication: ANTIFUNGAL PROPHYLAXIS
     Dosage: 800 MG (OTHER) (3 PER WEEK)
     Dates: start: 20200520, end: 20200608
  5. CEFTAZIDIME. [Suspect]
     Active Substance: CEFTAZIDIME
     Indication: PYREXIA
     Dosage: 2 G, 2X/DAY
     Route: 042
     Dates: start: 20200519, end: 20200609
  6. MITOXANTRONE HCL [Suspect]
     Active Substance: MITOXANTRONE HYDROCHLORIDE
     Indication: ACUTE MYELOID LEUKAEMIA
     Dosage: 12 MG/M2, 1X/DAY
     Route: 042
     Dates: start: 20200519
  7. CYTARABINE. [Concomitant]
     Active Substance: CYTARABINE
     Dosage: 30 MG (OTHER) (D4, D7, D14)
     Dates: start: 20200522, end: 20200601

REACTIONS (3)
  - Dermatitis exfoliative generalised [Not Recovered/Not Resolved]
  - Urticaria [Not Recovered/Not Resolved]
  - Dermatitis acneiform [Not Recovered/Not Resolved]

NARRATIVE: CASE EVENT DATE: 20200608
